FAERS Safety Report 8881250 (Version 1)
Quarter: 2012Q4

REPORT INFORMATION
  Report Type: 
  Country: GB (occurrence: GB)
  Receive Date: 20121031
  Receipt Date: 20121031
  Transmission Date: 20130627
  Serious: Yes (Other)
  Sender: FDA-Public Use
  Company Number: GB-TEVA-366308ISR

PATIENT
  Sex: Female

DRUGS (2)
  1. VERAPAMIL [Suspect]
     Route: 065
  2. UNSPECIFIED INGREDIENT [Interacting]
     Route: 065

REACTIONS (3)
  - Aggression [Unknown]
  - Hallucination [Unknown]
  - Drug interaction [Unknown]
